FAERS Safety Report 18351659 (Version 1)
Quarter: 2020Q4

REPORT INFORMATION
  Report Type: Spontaneous
  Country: FR (occurrence: FR)
  Receive Date: 20201007
  Receipt Date: 20201007
  Transmission Date: 20210114
  Serious: Yes (Other)
  Sender: FDA-Public Use
  Company Number: FR-ABBVIE-16P-056-1633133-00

PATIENT
  Age: 18 Year
  Sex: Female

DRUGS (4)
  1. DEPAKINE [Suspect]
     Active Substance: VALPROATE SODIUM
     Route: 065
  2. PHENOBARBITAL. [Concomitant]
     Active Substance: PHENOBARBITAL
     Indication: PRODUCT USED FOR UNKNOWN INDICATION
     Dates: end: 1978
  3. DEPAKINE [Suspect]
     Active Substance: VALPROATE SODIUM
     Indication: EPILEPSY
     Route: 065
     Dates: start: 1978
  4. DEPAKINE [Suspect]
     Active Substance: VALPROATE SODIUM
     Route: 065
     Dates: start: 19890316

REACTIONS (6)
  - Drug level decreased [Recovered/Resolved]
  - Epilepsy [Recovered/Resolved]
  - Cytomegalovirus infection [Unknown]
  - Maternal exposure during pregnancy [Unknown]
  - Infection [Unknown]
  - Threatened labour [Unknown]

NARRATIVE: CASE EVENT DATE: 197804
